FAERS Safety Report 9258886 (Version 2)
Quarter: 2013Q2

REPORT INFORMATION
  Report Type: Spontaneous
  Country: BR (occurrence: BR)
  Receive Date: 20130426
  Receipt Date: 20130625
  Transmission Date: 20140414
  Serious: Yes (Other)
  Sender: FDA-Public Use
  Company Number: BR-ASTRAZENECA-2013SE26306

PATIENT
  Age: 78 Year
  Sex: Male
  Weight: 92 kg

DRUGS (8)
  1. ZESTRIL [Suspect]
     Indication: HYPERTENSION
     Route: 048
     Dates: start: 1993, end: 2003
  2. ZESTRIL [Suspect]
     Indication: HYPERTENSION
     Route: 048
     Dates: start: 2003, end: 201305
  3. OMEPRAZOLE [Suspect]
     Indication: GASTRITIS PROPHYLAXIS
     Route: 048
  4. RITMONORM (PROPAFENONE 300MG) [Suspect]
     Indication: ARRHYTHMIA
     Route: 048
     Dates: start: 2013, end: 2013
  5. RITMONORM (PROPAFENONE 300MG) [Suspect]
     Indication: ARRHYTHMIA
     Route: 048
     Dates: start: 2013
  6. SINVASCOR [Concomitant]
     Indication: BLOOD CHOLESTEROL INCREASED
     Dosage: DAILY
  7. SINVASCOR [Concomitant]
     Indication: BLOOD CHOLESTEROL INCREASED
     Dosage: GENERIC
  8. ARADOIS [Concomitant]
     Dates: start: 201305

REACTIONS (6)
  - Blood pressure increased [Recovering/Resolving]
  - Arrhythmia [Not Recovered/Not Resolved]
  - Blood pressure abnormal [Recovered/Resolved]
  - Chest pain [Unknown]
  - Anxiety [Unknown]
  - Drug ineffective [Not Recovered/Not Resolved]
